FAERS Safety Report 22215618 (Version 2)
Quarter: 2023Q2

REPORT INFORMATION
  Report Type: Spontaneous
  Country: US (occurrence: None)
  Receive Date: 20230416
  Receipt Date: 20230607
  Transmission Date: 20230722
  Serious: No
  Sender: FDA-Public Use
  Company Number: 2023A082364

PATIENT
  Sex: Female
  Weight: 48.6 kg

DRUGS (1)
  1. BREZTRI [Suspect]
     Active Substance: BUDESONIDE\FORMOTEROL\GLYCOPYRROLATE
     Indication: Chronic obstructive pulmonary disease
     Dosage: 2 PUFFS
     Route: 055
     Dates: start: 202208

REACTIONS (6)
  - Moaning [Unknown]
  - Device use issue [Unknown]
  - Off label use [Unknown]
  - Incorrect dose administered by device [Unknown]
  - Overdose [Unknown]
  - Device delivery system issue [Unknown]
